FAERS Safety Report 14296595 (Version 1)
Quarter: 2017Q4

REPORT INFORMATION
  Report Type: Spontaneous
  Country: US (occurrence: US)
  Receive Date: 20171218
  Receipt Date: 20171218
  Transmission Date: 20180321
  Serious: Yes (Hospitalization, Other)
  Sender: FDA-Public Use
  Company Number: US-PURDUE PHARMA-USA-2017-0141956

PATIENT

DRUGS (3)
  1. FENTANYL. [Suspect]
     Active Substance: FENTANYL
     Indication: PAIN
     Dosage: 25 MCG, UNK
     Route: 062
  2. OXYCODONE HYDROCHLORIDE. [Suspect]
     Active Substance: OXYCODONE HYDROCHLORIDE
     Indication: BREAKTHROUGH PAIN
     Dosage: 15 MG, QID
     Route: 048
  3. OXYCODONE HYDROCHLORIDE. [Suspect]
     Active Substance: OXYCODONE HYDROCHLORIDE
     Dosage: 15 MG, Q3H
     Route: 048

REACTIONS (21)
  - Intentional product use issue [Unknown]
  - Drug withdrawal syndrome [Unknown]
  - Restlessness [Unknown]
  - Pain [Unknown]
  - Loss of personal independence in daily activities [Unknown]
  - Surgery [Unknown]
  - Anxiety [Unknown]
  - Hyperhidrosis [Unknown]
  - Confusional state [Unknown]
  - Visual impairment [Unknown]
  - Dizziness [Unknown]
  - Cognitive disorder [Unknown]
  - Lethargy [Unknown]
  - Dependence [Unknown]
  - Pain in extremity [Unknown]
  - Nausea [Unknown]
  - Heart rate increased [Unknown]
  - Panic reaction [Unknown]
  - Blood pressure increased [Unknown]
  - Malaise [Unknown]
  - Back pain [Unknown]
